FAERS Safety Report 6974202-4 (Version None)
Quarter: 2010Q3

REPORT INFORMATION
  Report Type: 
  Country: None (occurrence: None)
  Receive Date: 20100909
  Receipt Date: 20080215
  Transmission Date: 20110219
  Serious: No
  Sender: FDA-Public Use
  Company Number: US-WYE-H02703408

PATIENT
  Age: 74 Year
  Sex: Female

DRUGS (2)
  1. PROTONIX [Suspect]
     Indication: GASTROOESOPHAGEAL REFLUX DISEASE
     Route: 048
     Dates: start: 20060101
  2. SYNTHROID [Concomitant]

REACTIONS (4)
  - DYSURIA [None]
  - FAECES DISCOLOURED [None]
  - HAEMATOCHEZIA [None]
  - HAEMATURIA [None]
